FAERS Safety Report 23426231 (Version 1)
Quarter: 2024Q1

REPORT INFORMATION
  Report Type: Spontaneous
  Country: FR (occurrence: FR)
  Receive Date: 20240122
  Receipt Date: 20240122
  Transmission Date: 20240410
  Serious: Yes (Other)
  Sender: FDA-Public Use
  Company Number: FR-SAMIL-GLO2023FR006393

PATIENT
  Age: 7 Year
  Sex: Female

DRUGS (6)
  1. CYCLOPHOSPHAMIDE [Suspect]
     Active Substance: CYCLOPHOSPHAMIDE
     Indication: Metastasis
     Dosage: UNK, (FORMULATION- INJECTION)
     Route: 042
     Dates: start: 2020, end: 2020
  2. CARBOPLATIN [Suspect]
     Active Substance: CARBOPLATIN
     Indication: Retinoblastoma
     Dosage: UNK
     Route: 042
     Dates: start: 2020, end: 2020
  3. ETOPOSIDE [Suspect]
     Active Substance: ETOPOSIDE
     Indication: Retinoblastoma
     Dosage: 2 CYCLES
     Route: 042
     Dates: start: 2020, end: 2020
  4. MELPHALAN [Suspect]
     Active Substance: MELPHALAN
     Indication: Retinoblastoma
     Dosage: 0.3 MG/ML; 0.06 MG(9 IVITC OF MELPHALAN)
     Dates: start: 2020, end: 2020
  5. MELPHALAN [Suspect]
     Active Substance: MELPHALAN
     Dosage: 5 MG, 4 MONTHLY INJECTIONS
     Route: 013
     Dates: start: 2020, end: 2020
  6. VINCRISTINE [Suspect]
     Active Substance: VINCRISTINE
     Indication: Metastasis
     Dosage: UNK ROUTE OF ADMIN (FREE TEXT): INTRAVENOUS (NOT OTHERWISE SPECIFIED)
     Route: 042
     Dates: start: 2020, end: 2020

REACTIONS (5)
  - Cataract [Recovered/Resolved]
  - Iris atrophy [Recovered/Resolved]
  - Drug effective for unapproved indication [Unknown]
  - Off label use [Unknown]
  - Off label use [Unknown]

NARRATIVE: CASE EVENT DATE: 20200101
